FAERS Safety Report 10052745 (Version 2)
Quarter: 2014Q2

REPORT INFORMATION
  Report Type: Report from Study
  Country: CA (occurrence: CA)
  Receive Date: 20140402
  Receipt Date: 20140417
  Transmission Date: 20141212
  Serious: No
  Sender: FDA-Public Use
  Company Number: CA-JNJFOC-20140317380

PATIENT
  Sex: Female
  Weight: 86.4 kg

DRUGS (6)
  1. REMICADE [Suspect]
     Indication: COLITIS ULCERATIVE
     Route: 042
     Dates: start: 20140403
  2. REMICADE [Suspect]
     Indication: COLITIS ULCERATIVE
     Route: 042
     Dates: start: 20120330
  3. ASACOL [Concomitant]
     Route: 065
  4. CITALOPRAM [Concomitant]
     Route: 065
  5. IMURAN [Concomitant]
     Route: 065
  6. WELLBUTRIN [Concomitant]
     Route: 065

REACTIONS (1)
  - Exposure to communicable disease [Recovered/Resolved]
